FAERS Safety Report 6016055-7 (Version None)
Quarter: 2008Q4

REPORT INFORMATION
  Report Type: 
  Country: None (occurrence: None)
  Receive Date: 20081222
  Receipt Date: 20081209
  Transmission Date: 20090506
  Serious: Yes (Hospitalization)
  Sender: FDA-Public Use
  Company Number: FR-MERCK-0812FRA00043

PATIENT
  Age: 80 Year
  Sex: Female

DRUGS (6)
  1. ZOCOR [Suspect]
     Indication: DYSLIPIDAEMIA
     Route: 048
     Dates: start: 20080307, end: 20080308
  2. ALTHIAZIDE AND SPIRONOLACTONE [Suspect]
     Indication: HYPERTENSION
     Route: 048
     Dates: start: 20080307, end: 20080309
  3. PANTOPRAZOLE SODIUM [Suspect]
     Indication: DUODENAL ULCER
     Route: 048
     Dates: start: 20080307, end: 20080308
  4. ACEBUTOLOL HYDROCHLORIDE [Concomitant]
     Route: 048
  5. AMIODARONE HYDROCHLORIDE [Concomitant]
     Route: 048
  6. ASPIRIN LYSINE [Concomitant]
     Route: 048

REACTIONS (2)
  - DERMATITIS EXFOLIATIVE [None]
  - PYREXIA [None]
